FAERS Safety Report 25489830 (Version 1)
Quarter: 2025Q2

REPORT INFORMATION
  Report Type: Spontaneous
  Country: CA (occurrence: CA)
  Receive Date: 20250627
  Receipt Date: 20250627
  Transmission Date: 20250717
  Serious: Yes (Hospitalization)
  Sender: TEVA
  Company Number: CA-TEVA-VS-3343674

PATIENT
  Age: 73 Year
  Sex: Female

DRUGS (1)
  1. AMIODARONE [Suspect]
     Active Substance: AMIODARONE
     Indication: Product used for unknown indication
     Route: 065

REACTIONS (4)
  - Pulmonary fibrosis [Unknown]
  - Liver scan abnormal [Unknown]
  - Dyspnoea [Unknown]
  - Cardiac failure [Unknown]
